FAERS Safety Report 8776840 (Version 2)
Quarter: 2012Q4

REPORT INFORMATION
  Report Type: 
  Country: US (occurrence: US)
  Receive Date: 20120911
  Receipt Date: 20121031
  Transmission Date: 20130627
  Serious: Yes (Other)
  Sender: FDA-Public Use
  Company Number: US-JNJFOC-20120900286

PATIENT
  Sex: Female

DRUGS (4)
  1. EXTRA STRENGTH TYLENOL [Suspect]
     Indication: BACK PAIN
     Dosage: as needed
     Route: 048
  2. PRENATAL VITAMINS [Concomitant]
     Indication: PREGNANCY
  3. FOLIC ACID [Concomitant]
     Indication: PREGNANCY
  4. LOVENOX [Concomitant]
     Indication: PREGNANCY
     Dates: end: 20111225

REACTIONS (2)
  - Premature labour [Recovered/Resolved]
  - Exposure during pregnancy [Recovered/Resolved]
